FAERS Safety Report 25856821 (Version 1)
Quarter: 2025Q3

REPORT INFORMATION
  Report Type: Spontaneous
  Country: EU (occurrence: EU)
  Receive Date: 20250929
  Receipt Date: 20250929
  Transmission Date: 20251021
  Serious: Yes (Death, Other)
  Sender: JUBILANT
  Company Number: None

PATIENT

DRUGS (1)
  1. QUETIAPINE FUMARATE [Suspect]
     Active Substance: QUETIAPINE FUMARATE
     Indication: Insomnia
     Dosage: 1 DOSAGE FORM, ONCE PER DAY
     Route: 048
     Dates: start: 20250310

REACTIONS (2)
  - Delusion [Fatal]
  - Completed suicide [Fatal]
